FAERS Safety Report 5055648-0 (Version None)
Quarter: 2006Q3

REPORT INFORMATION
  Report Type: 
  Country: None (occurrence: None)
  Receive Date: 20060714
  Receipt Date: 20060627
  Transmission Date: 20061208
  Serious: Yes (Hospitalization)
  Sender: FDA-Public Use
  Company Number: US200606000155

PATIENT
  Sex: Female

DRUGS (8)
  1. FORTEO [Suspect]
     Indication: OSTEOPOROSIS
  2. FORTEO PEN (FORTEO PEN) [Concomitant]
  3. PROPRANOLOL [Concomitant]
  4. LISINOPRIL [Concomitant]
  5. SIMVASTATIN [Concomitant]
  6. MECLIZINE [Concomitant]
  7. ERGOCALCIFEROL [Concomitant]
  8. VITAMIN E [Concomitant]

REACTIONS (2)
  - DEHYDRATION [None]
  - TREATMENT NONCOMPLIANCE [None]
